FAERS Safety Report 4566900-7 (Version None)
Quarter: 2005Q1

REPORT INFORMATION
  Report Type: 
  Country: None (occurrence: None)
  Receive Date: 20050201
  Receipt Date: 20030409
  Transmission Date: 20050727
  Serious: Yes (Other)
  Sender: FDA-Public Use
  Company Number: US-BRISTOL-MYERS SQUIBB COMPANY-12241261

PATIENT
  Age: 66 Year
  Sex: Female

DRUGS (1)
  1. STADOL [Suspect]
     Indication: MIGRAINE
     Route: 045
     Dates: start: 19981109

REACTIONS (6)
  - DEPENDENCE [None]
  - DIZZINESS [None]
  - NASAL CONGESTION [None]
  - RESPIRATORY DISORDER [None]
  - SEDATION [None]
  - VOMITING [None]
